FAERS Safety Report 12411714 (Version 1)
Quarter: 2016Q2

REPORT INFORMATION
  Report Type: Report from Study
  Country: US (occurrence: US)
  Receive Date: 20160527
  Receipt Date: 20160527
  Transmission Date: 20160815
  Serious: Yes (Hospitalization, Other)
  Sender: FDA-Public Use
  Company Number: US-EMD SERONO-7206161

PATIENT
  Sex: Female

DRUGS (3)
  1. REBIF [Suspect]
     Active Substance: INTERFERON BETA-1A
     Indication: PRODUCT USED FOR UNKNOWN INDICATION
     Route: 058
     Dates: start: 20070416
  2. INFLUENZA VACCINE                  /00027001/ [Concomitant]
     Indication: PRODUCT USED FOR UNKNOWN INDICATION
  3. FORTEO [Concomitant]
     Active Substance: TERIPARATIDE
     Indication: PRODUCT USED FOR UNKNOWN INDICATION

REACTIONS (9)
  - Arthritis infective [Unknown]
  - Influenza [Unknown]
  - Ankle fracture [Unknown]
  - Fall [Unknown]
  - Abasia [Unknown]
  - Dysstasia [Not Recovered/Not Resolved]
  - Limb injury [Not Recovered/Not Resolved]
  - Muscular weakness [Unknown]
  - Drug dose omission [Unknown]

NARRATIVE: CASE EVENT DATE: 2012
